FAERS Safety Report 15203623 (Version 1)
Quarter: 2018Q3

REPORT INFORMATION
  Report Type: Spontaneous
  Country: DE (occurrence: DE)
  Receive Date: 20180726
  Receipt Date: 20180726
  Transmission Date: 20181010
  Serious: Yes (Death, Life-Threatening, Hospitalization, Other)
  Sender: FDA-Public Use
  Company Number: DE-TEVA-2018-DE-932243

PATIENT
  Age: 73 Year
  Sex: Female
  Weight: 106 kg

DRUGS (54)
  1. OXALIPLATIN. [Suspect]
     Active Substance: OXALIPLATIN
     Route: 042
     Dates: start: 20140326, end: 20140327
  2. FOLINIC ACID [Suspect]
     Active Substance: LEUCOVORIN
     Route: 042
     Dates: start: 20140617, end: 20140618
  3. 5?FU [Suspect]
     Active Substance: FLUOROURACIL
     Indication: COLORECTAL CANCER METASTATIC
     Route: 042
     Dates: start: 20131008, end: 20131009
  4. AVASTIN [Suspect]
     Active Substance: BEVACIZUMAB
     Route: 042
     Dates: start: 20131210, end: 20131210
  5. CHLORHEXIDINE GLUCONATE. [Concomitant]
     Active Substance: CHLORHEXIDINE GLUCONATE
  6. GLANDOMED [Concomitant]
  7. NOVAMINSULFON [Concomitant]
     Active Substance: METAMIZOLE
  8. OXALIPLATIN. [Suspect]
     Active Substance: OXALIPLATIN
     Route: 042
     Dates: start: 20131210, end: 20131210
  9. FOLINIC ACID [Suspect]
     Active Substance: LEUCOVORIN
     Route: 042
     Dates: start: 20131210, end: 20131211
  10. 5?FU [Suspect]
     Active Substance: FLUOROURACIL
     Route: 042
     Dates: start: 20131119, end: 20131120
  11. 5?FU [Suspect]
     Active Substance: FLUOROURACIL
     Route: 042
     Dates: start: 20131210, end: 20131211
  12. 5?FU [Suspect]
     Active Substance: FLUOROURACIL
     Route: 042
     Dates: start: 20140326, end: 20140327
  13. BEVACIZUMAB. [Suspect]
     Active Substance: BEVACIZUMAB
     Indication: COLORECTAL CANCER METASTATIC
     Route: 042
     Dates: start: 20131008, end: 20131008
  14. SODIUM CHLORIDE. [Concomitant]
     Active Substance: SODIUM CHLORIDE
  15. OXALIPLATIN. [Suspect]
     Active Substance: OXALIPLATIN
     Indication: COLORECTAL CANCER METASTATIC
     Route: 042
     Dates: start: 20131008, end: 20131008
  16. OXALIPLATIN. [Suspect]
     Active Substance: OXALIPLATIN
     Route: 042
     Dates: start: 20131119, end: 20131119
  17. FOLINIC ACID [Suspect]
     Active Substance: LEUCOVORIN
     Route: 042
     Dates: start: 20140822, end: 20140823
  18. 5?FU [Suspect]
     Active Substance: FLUOROURACIL
     Route: 042
     Dates: start: 20140211, end: 20140212
  19. 5?FU [Suspect]
     Active Substance: FLUOROURACIL
     Route: 042
     Dates: start: 20140415, end: 20140415
  20. 5?FU [Suspect]
     Active Substance: FLUOROURACIL
     Route: 042
     Dates: start: 20140603, end: 20140604
  21. FOLINIC ACID [Suspect]
     Active Substance: LEUCOVORIN
     Route: 042
     Dates: start: 20140211, end: 20140212
  22. FOLINIC ACID [Suspect]
     Active Substance: LEUCOVORIN
     Route: 042
     Dates: start: 20140603, end: 20140604
  23. FOLINIC ACID [Suspect]
     Active Substance: LEUCOVORIN
     Route: 042
     Dates: start: 20140701, end: 20140702
  24. 5?FU [Suspect]
     Active Substance: FLUOROURACIL
     Route: 042
     Dates: start: 20140715, end: 20140716
  25. 5?FU [Suspect]
     Active Substance: FLUOROURACIL
     Route: 042
     Dates: start: 20140930, end: 20141001
  26. LONQUEX [Concomitant]
     Active Substance: LIPEGFILGRASTIM
  27. SODIUM BICARBONATE. [Concomitant]
     Active Substance: SODIUM BICARBONATE
  28. URO?TABLINEN [Concomitant]
  29. OXALIPLATIN. [Suspect]
     Active Substance: OXALIPLATIN
     Route: 042
     Dates: start: 20140121, end: 20140121
  30. FOLINIC ACID [Suspect]
     Active Substance: LEUCOVORIN
     Route: 042
     Dates: start: 20140121, end: 20140122
  31. MACROGOL [Concomitant]
     Active Substance: POLYETHYLENE GLYCOLS
  32. SACCHARIN SODIUM [Concomitant]
     Active Substance: SACCHARIN SODIUM DIHYDRATE
  33. RAMIPRIL. [Concomitant]
     Active Substance: RAMIPRIL
  34. OXALIPLATIN. [Suspect]
     Active Substance: OXALIPLATIN
     Route: 042
     Dates: start: 20140211, end: 20140211
  35. FOLINIC ACID [Suspect]
     Active Substance: LEUCOVORIN
     Indication: COLORECTAL CANCER METASTATIC
     Route: 042
     Dates: start: 20131008, end: 20131009
  36. FOLINIC ACID [Suspect]
     Active Substance: LEUCOVORIN
     Route: 042
     Dates: start: 20131029, end: 20131030
  37. FOLINIC ACID [Suspect]
     Active Substance: LEUCOVORIN
     Route: 042
     Dates: start: 20131119, end: 20131120
  38. FOLINIC ACID [Suspect]
     Active Substance: LEUCOVORIN
     Route: 042
     Dates: start: 20140326, end: 20140327
  39. FOLINIC ACID [Suspect]
     Active Substance: LEUCOVORIN
     Route: 042
     Dates: start: 20140916, end: 20140917
  40. FOLINIC ACID [Suspect]
     Active Substance: LEUCOVORIN
     Route: 042
     Dates: start: 20140930, end: 20141001
  41. 5?FU [Suspect]
     Active Substance: FLUOROURACIL
     Route: 042
     Dates: start: 20140121, end: 20140122
  42. 5?FU [Suspect]
     Active Substance: FLUOROURACIL
     Route: 042
     Dates: start: 20140916, end: 20140917
  43. 5?FU [Suspect]
     Active Substance: FLUOROURACIL
     Route: 042
     Dates: start: 20140822, end: 20140823
  44. FOLINIC ACID [Suspect]
     Active Substance: LEUCOVORIN
     Route: 042
     Dates: start: 20140715, end: 20140716
  45. 5?FU [Suspect]
     Active Substance: FLUOROURACIL
     Route: 042
     Dates: start: 20131008, end: 20131009
  46. 5?FU [Suspect]
     Active Substance: FLUOROURACIL
     Route: 042
     Dates: start: 20131029, end: 20131030
  47. 5?FU [Suspect]
     Active Substance: FLUOROURACIL
     Route: 042
     Dates: start: 20140617, end: 20140618
  48. PANTOZOL [Concomitant]
     Active Substance: PANTOPRAZOLE SODIUM
  49. L?THYROXIN [Concomitant]
     Active Substance: LEVOTHYROXINE SODIUM
  50. NEULASTA [Concomitant]
     Active Substance: PEGFILGRASTIM
  51. OPIUM TINCTURE [Concomitant]
     Active Substance: MORPHINE
  52. OXALIPLATIN. [Suspect]
     Active Substance: OXALIPLATIN
     Route: 042
     Dates: start: 20131029, end: 20131029
  53. FOLINIC ACID [Suspect]
     Active Substance: LEUCOVORIN
     Route: 042
     Dates: start: 20140415, end: 20140416
  54. 5?FU [Suspect]
     Active Substance: FLUOROURACIL
     Route: 042
     Dates: start: 20140701, end: 20140702

REACTIONS (4)
  - Febrile neutropenia [Recovered/Resolved]
  - Malignant neoplasm progression [Fatal]
  - Neutropenia [Recovered/Resolved]
  - Pulmonary embolism [Recovered/Resolved]

NARRATIVE: CASE EVENT DATE: 20131223
